FAERS Safety Report 18284784 (Version 2)
Quarter: 2020Q3

REPORT INFORMATION
  Report Type: Spontaneous
  Country: TW (occurrence: TW)
  Receive Date: 20200918
  Receipt Date: 20200924
  Transmission Date: 20201103
  Serious: Yes (Death, Other)
  Sender: FDA-Public Use
  Company Number: TW-PFIZER INC-2020361585

PATIENT
  Sex: Female

DRUGS (47)
  1. ALPRAZOLAM. [Suspect]
     Active Substance: ALPRAZOLAM
     Dosage: 0.5 MG, 1/UNK
     Route: 065
  2. RISPERDAL [Suspect]
     Active Substance: RISPERIDONE
     Dosage: 1 MG/ML, UNK
     Route: 048
  3. RISPERIDONE. [Suspect]
     Active Substance: RISPERIDONE
     Dosage: 1 MG, 1/UNK
     Route: 065
  4. AZOR [Suspect]
     Active Substance: AMLODIPINE BESYLATE\OLMESARTAN MEDOXOMIL
     Dosage: 40 MG, 1/UNK
     Route: 065
  5. RISPERDAL CONSTA [Suspect]
     Active Substance: RISPERIDONE
     Dosage: 25 MG, 1/UNK
     Route: 030
  6. RISPERDAL [Suspect]
     Active Substance: RISPERIDONE
     Dosage: 1 MG, 1/UNK
     Route: 048
  7. RISPERDAL [Suspect]
     Active Substance: RISPERIDONE
     Dosage: 2 MG, 1/UNK
     Route: 048
  8. RISPERDAL [Suspect]
     Active Substance: RISPERIDONE
     Dosage: 2 MG, 1/UNK
     Route: 048
  9. RISPERDAL [Suspect]
     Active Substance: RISPERIDONE
     Dosage: 3 MG, 1/UNK
     Route: 048
  10. BIPERIDEN HCL [Suspect]
     Active Substance: BIPERIDEN HYDROCHLORIDE
     Dosage: 2 MG, 1/UNK
     Route: 065
  11. RISPERDAL CONSTA [Suspect]
     Active Substance: RISPERIDONE
     Dosage: 37.5 MG, 1/UNK
     Route: 030
  12. RISPERDAL CONSTA [Suspect]
     Active Substance: RISPERIDONE
     Dosage: 50 MG, 1/UNK
     Route: 030
  13. RISPERDAL [Suspect]
     Active Substance: RISPERIDONE
     Dosage: 1 MG, 1/UNK
     Route: 048
  14. RISPERDAL [Suspect]
     Active Substance: RISPERIDONE
     Dosage: 4 MG, 1/UNK
     Route: 048
  15. RISPERDAL [Suspect]
     Active Substance: RISPERIDONE
     Dosage: UNK
  16. RISPERIDONE. [Suspect]
     Active Substance: RISPERIDONE
     Dosage: 1 MG, 1/UNK
     Route: 065
  17. RISPERIDONE. [Suspect]
     Active Substance: RISPERIDONE
     Dosage: 1 MG, 1/UNK
     Route: 065
  18. SEVIKAR [Suspect]
     Active Substance: AMLODIPINE BESYLATE\OLMESARTAN MEDOXOMIL
     Dosage: 40 MG, 1/UNK
     Route: 065
  19. RISPERDAL [Suspect]
     Active Substance: RISPERIDONE
     Dosage: 1 MG/ML, UNK
     Route: 048
  20. RISPERDAL [Suspect]
     Active Substance: RISPERIDONE
     Dosage: 2 MG, 1/UNK
     Route: 048
  21. RISPERDAL [Suspect]
     Active Substance: RISPERIDONE
     Dosage: 4 MG, 1/UNK
     Route: 048
  22. RISPERDAL CONSTA [Suspect]
     Active Substance: RISPERIDONE
     Dosage: 50 MG, 1/UNK
     Route: 030
  23. RISPERDAL [Suspect]
     Active Substance: RISPERIDONE
     Dosage: 1 MG, 1/UNK
     Route: 048
  24. RISPERDAL [Suspect]
     Active Substance: RISPERIDONE
     Dosage: 1 MG, 1/UNK
     Route: 048
  25. RISPERIDONE. [Suspect]
     Active Substance: RISPERIDONE
     Dosage: 0.5 MG, 1/UNK
     Route: 048
  26. CARVEDILOL. [Suspect]
     Active Substance: CARVEDILOL
     Dosage: 25 MG, 1/UNK
     Route: 065
  27. RISPERDAL CONSTA [Suspect]
     Active Substance: RISPERIDONE
     Dosage: 37.5 MG, 1/UNK
     Route: 030
  28. RISPERDAL [Suspect]
     Active Substance: RISPERIDONE
     Dosage: 2 MG, 1/UNK
     Route: 048
  29. RISPERDAL [Suspect]
     Active Substance: RISPERIDONE
     Dosage: 3 MG, 1/UNK
     Route: 048
  30. FLUOXETINE [Suspect]
     Active Substance: FLUOXETINE HYDROCHLORIDE
     Dosage: 20 MG, 1/UNK
     Route: 065
  31. GLIMEPIRIDE AND METFORMIN HYDROCHLORIDE [Suspect]
     Active Substance: GLIMEPIRIDE\METFORMIN
     Dosage: 500 MG, 1/UNK
     Route: 065
  32. RISPERIDONE. [Suspect]
     Active Substance: RISPERIDONE
     Dosage: 1 MG, 1/UNK
     Route: 065
  33. RISPERDAL CONSTA [Suspect]
     Active Substance: RISPERIDONE
     Dosage: 50 MG, 1/UNK
     Route: 030
  34. RISPERDAL [Suspect]
     Active Substance: RISPERIDONE
     Dosage: 3 MG, 1/UNK
     Route: 048
  35. RISPERDAL [Suspect]
     Active Substance: RISPERIDONE
     Dosage: 3 MG, 1/UNK
     Route: 048
  36. RISPERDAL [Suspect]
     Active Substance: RISPERIDONE
     Dosage: 4 MG, 1/UNK
     Route: 048
  37. RISPERDAL [Suspect]
     Active Substance: RISPERIDONE
     Dosage: 4 MG, 1/UNK
     Route: 048
  38. RISPERIDONE. [Suspect]
     Active Substance: RISPERIDONE
     Dosage: 3 MG, 1/UNK
     Route: 048
  39. RISPERIDONE. [Suspect]
     Active Substance: RISPERIDONE
     Dosage: 2 MG, 1/UNK
     Route: 048
  40. RISPERDAL CONSTA [Suspect]
     Active Substance: RISPERIDONE
     Dosage: 25 MG, 1/UNK
     Route: 030
  41. RISPERDAL CONSTA [Suspect]
     Active Substance: RISPERIDONE
     Dosage: 25 MG, 1/UNK
     Route: 030
  42. RISPERDAL CONSTA [Suspect]
     Active Substance: RISPERIDONE
     Dosage: 37.5 MG, 1/UNK
     Route: 030
  43. ESTAZOLAM. [Suspect]
     Active Substance: ESTAZOLAM
     Dosage: 2 MG, 1/UNK
     Route: 065
  44. PROPRANOLOL HCL [Suspect]
     Active Substance: PROPRANOLOL HYDROCHLORIDE
     Dosage: 40 MG, 1/UNK
     Route: 065
  45. RISPERIDONE. [Suspect]
     Active Substance: RISPERIDONE
     Dosage: 0.5 MG, 1/UNK
     Route: 048
  46. RISPERIDONE. [Suspect]
     Active Substance: RISPERIDONE
     Dosage: 1 MG, 1/UNK
     Route: 048
  47. RISPERIDONE. [Suspect]
     Active Substance: RISPERIDONE
     Dosage: 1 MG, 1/UNK
     Route: 048

REACTIONS (16)
  - Palpitations [Fatal]
  - Sexual dysfunction [Fatal]
  - Weight increased [Unknown]
  - Breast enlargement [Fatal]
  - Obesity [Fatal]
  - Menstruation irregular [Fatal]
  - Somnolence [Fatal]
  - Dry mouth [Fatal]
  - Vision blurred [Fatal]
  - Dysuria [Fatal]
  - Sedation [Fatal]
  - Headache [Fatal]
  - Nervousness [Fatal]
  - Constipation [Fatal]
  - Galactorrhoea [Fatal]
  - Dyskinesia [Fatal]
